FAERS Safety Report 21247822 (Version 1)
Quarter: 2022Q3

REPORT INFORMATION
  Report Type: Spontaneous
  Country: CA (occurrence: None)
  Receive Date: 20220824
  Receipt Date: 20220824
  Transmission Date: 20221026
  Serious: No
  Sender: FDA-Public Use
  Company Number: CA-ROCHE-3166638

PATIENT

DRUGS (1)
  1. OCREVUS [Suspect]
     Active Substance: OCRELIZUMAB
     Indication: Multiple sclerosis
     Route: 042

REACTIONS (8)
  - Fatigue [Unknown]
  - Oral herpes [Unknown]
  - Feeling of body temperature change [Unknown]
  - Fatigue [Unknown]
  - Cervical radiculopathy [Unknown]
  - Blood smear test abnormal [Unknown]
  - Hot flush [Unknown]
  - Ear pain [Unknown]
